FAERS Safety Report 5264872-3 (Version None)
Quarter: 2007Q1

REPORT INFORMATION
  Report Type: 
  Country: None (occurrence: None)
  Receive Date: 20070314
  Receipt Date: 20070228
  Transmission Date: 20070707
  Serious: Yes (Hospitalization)
  Sender: FDA-Public Use
  Company Number: US-ELI_LILLY_AND_COMPANY-US200611002517

PATIENT
  Age: 80 Year
  Sex: Female

DRUGS (10)
  1. FORTEO [Suspect]
     Indication: OSTEOPOROSIS
     Dosage: 20 UG, DAILY (1/D)
     Dates: start: 20060501, end: 20060810
  2. COUMADIN [Concomitant]
  3. TIAZAC [Concomitant]
  4. TRANXENE [Concomitant]
  5. ULTRACET [Concomitant]
  6. DARVOCET [Concomitant]
  7. HYDROCHLOROTHIAZIDE [Concomitant]
  8. SINGULAIR [Concomitant]
  9. CALCIUM AND ERGOCALCIFEROL [Concomitant]
  10. ACIPHEX [Concomitant]
     Dosage: 20 MG, UNK

REACTIONS (5)
  - ASTHENIA [None]
  - COAGULATION TIME PROLONGED [None]
  - FATIGUE [None]
  - HAEMATOMA [None]
  - PULMONARY EMBOLISM [None]
